FAERS Safety Report 9759678 (Version 1)
Quarter: 2013Q4

REPORT INFORMATION
  Report Type: Report from Study
  Country: FR (occurrence: FR)
  Receive Date: 20131216
  Receipt Date: 20131216
  Transmission Date: 20140711
  Serious: Yes (Other)
  Sender: FDA-Public Use
  Company Number: FR-PFIZER INC-2013351419

PATIENT
  Sex: 0

DRUGS (8)
  1. VANCOMYCIN [Suspect]
     Dosage: UNK
  2. RIFAMPICIN [Suspect]
     Dosage: UNK
  3. FLUINDIONE [Concomitant]
     Dosage: UNK
  4. ACEBUTOLOL [Concomitant]
     Dosage: UNK
  5. AMIODARONE [Concomitant]
     Dosage: UNK
  6. ASPIRIN [Concomitant]
     Dosage: UNK
  7. CIPROFLOXACIN [Concomitant]
     Dosage: UNK
  8. LINCOMYCIN [Concomitant]
     Dosage: UNK

REACTIONS (1)
  - Linear IgA disease [Unknown]
